FAERS Safety Report 7602685-5 (Version None)
Quarter: 2011Q3

REPORT INFORMATION
  Report Type: 
  Country: None (occurrence: None)
  Receive Date: 20110701
  Receipt Date: 20100322
  Transmission Date: 20111222
  Serious: Yes (Other)
  Sender: FDA-Public Use
  Company Number: SIM_00028_2011

PATIENT
  Age: 13 Year
  Sex: Female

DRUGS (1)
  1. STYE EYE RELIEF (HOMEOPATHIC) [Suspect]
     Indication: HORDEOLUM
     Dosage: (DF OPHTHALMIC)
     Route: 047
     Dates: start: 20100316, end: 20100316

REACTIONS (2)
  - EYE INFECTION [None]
  - TRANSMISSION OF AN INFECTIOUS AGENT VIA A MEDICINAL PRODUCT [None]
